APPROVED DRUG PRODUCT: EXFORGE
Active Ingredient: AMLODIPINE BESYLATE; VALSARTAN
Strength: EQ 10MG BASE;320MG
Dosage Form/Route: TABLET;ORAL
Application: N021990 | Product #005 | TE Code: AB
Applicant: NOVARTIS PHARMACEUTICALS CORP
Approved: Jun 20, 2007 | RLD: Yes | RS: Yes | Type: RX